FAERS Safety Report 8546989-0 (Version None)
Quarter: 2012Q3

REPORT INFORMATION
  Report Type: 
  Country: None (occurrence: None)
  Receive Date: 20120727
  Receipt Date: 20120306
  Transmission Date: 20120928
  Serious: No
  Sender: FDA-Public Use
  Company Number: US-ASTRAZENECA-2012SE15565

PATIENT
  Age: 82 Year
  Sex: Female

DRUGS (2)
  1. LIBRIUM [Interacting]
     Route: 065
  2. SEROQUEL [Suspect]
     Route: 048

REACTIONS (5)
  - INSOMNIA [None]
  - ADVERSE DRUG REACTION [None]
  - DRUG INTERACTION [None]
  - ANXIETY [None]
  - DRUG WITHDRAWAL SYNDROME [None]
